FAERS Safety Report 6149601-3 (Version None)
Quarter: 2009Q2

REPORT INFORMATION
  Report Type: 
  Country: None (occurrence: None)
  Receive Date: 20090409
  Receipt Date: 20090327
  Transmission Date: 20091009
  Serious: Yes (Other)
  Sender: FDA-Public Use
  Company Number: US-ROCHE-624186

PATIENT
  Sex: Female
  Weight: 58.1 kg

DRUGS (2)
  1. CAPECITABINE [Suspect]
     Indication: BREAST CANCER
     Route: 048
  2. AVASTIN [Concomitant]

REACTIONS (1)
  - DISEASE PROGRESSION [None]
